FAERS Safety Report 10192387 (Version 2)
Quarter: 2014Q2

REPORT INFORMATION
  Report Type: Spontaneous
  Country: BE (occurrence: BE)
  Receive Date: 20140523
  Receipt Date: 20140523
  Transmission Date: 20141212
  Serious: Yes (Other)
  Sender: FDA-Public Use
  Company Number: BE-JNJFOC-20140303293

PATIENT
  Age: 56 Year
  Sex: Male
  Weight: 75 kg

DRUGS (3)
  1. INVEGA [Suspect]
     Indication: INSOMNIA
     Route: 048
     Dates: start: 20140207, end: 20140208
  2. DOMINAL [Concomitant]
     Indication: INSOMNIA
     Dates: start: 2012
  3. FLUOXETINE [Concomitant]
     Indication: PRODUCT USED FOR UNKNOWN INDICATION
     Dosage: USING FOR A LONG TIME

REACTIONS (2)
  - Erysipelas [Recovered/Resolved]
  - Off label use [Unknown]
